FAERS Safety Report 12466919 (Version 2)
Quarter: 2016Q3

REPORT INFORMATION
  Report Type: Report from Study
  Country: JP (occurrence: JP)
  Receive Date: 20160615
  Receipt Date: 20160705
  Transmission Date: 20161109
  Serious: Yes (Other)
  Sender: FDA-Public Use
  Company Number: PHJP2015JP023459

PATIENT
  Age: 43 Year
  Sex: Female
  Weight: 52 kg

DRUGS (47)
  1. PREDONINE [Suspect]
     Active Substance: PREDNISOLONE\PREDNISOLONE ACETATE\PREDNISOLONE SODIUM SUCCINATE
     Dosage: 15 MG, UNK
     Route: 048
     Dates: start: 20140204, end: 20140331
  2. PREDONINE [Suspect]
     Active Substance: PREDNISOLONE\PREDNISOLONE ACETATE\PREDNISOLONE SODIUM SUCCINATE
     Dosage: 5 MG, UNK
     Route: 048
     Dates: start: 20140610, end: 20140724
  3. SOLU-MEDROL [Concomitant]
     Active Substance: METHYLPREDNISOLONE SODIUM SUCCINATE
     Indication: MULTIPLE SCLEROSIS
     Dosage: 1000 MG, UNK
     Route: 065
     Dates: start: 20120214, end: 20120216
  4. SOLU-MEDROL [Concomitant]
     Active Substance: METHYLPREDNISOLONE SODIUM SUCCINATE
     Dosage: 500 MG, UNK
     Route: 065
     Dates: start: 20140725, end: 20140725
  5. FERROMIA [Concomitant]
     Active Substance: FERROUS CITRATE
     Indication: ANAEMIA
     Dosage: 50 MG, UNK
     Route: 048
     Dates: start: 20130225, end: 20130311
  6. GILENYA [Suspect]
     Active Substance: FINGOLIMOD HYDROCHLORIDE
     Indication: MULTIPLE SCLEROSIS
     Dosage: 0.5 MG, QD
     Route: 048
     Dates: start: 20130214
  7. SOLU-MEDROL [Concomitant]
     Active Substance: METHYLPREDNISOLONE SODIUM SUCCINATE
     Dosage: 1000 MG, UNK
     Route: 065
     Dates: start: 20121211, end: 20121211
  8. SOLU-MEDROL [Concomitant]
     Active Substance: METHYLPREDNISOLONE SODIUM SUCCINATE
     Dosage: 500 MG, UNK
     Route: 065
     Dates: start: 20140728, end: 20140728
  9. BIOFERMIN [Concomitant]
     Active Substance: BACILLUS SUBTILIS\LACTOBACILLUS ACIDOPHILUS\STREPTOCOCCUS FAECAIS
     Indication: DIARRHOEA
     Dosage: 3 DF, UNK
     Route: 048
     Dates: start: 20130225
  10. PREDONINE [Suspect]
     Active Substance: PREDNISOLONE\PREDNISOLONE ACETATE\PREDNISOLONE SODIUM SUCCINATE
     Dosage: 10 MG, UNK
     Route: 048
     Dates: start: 20121016, end: 20130311
  11. PROGRAF [Concomitant]
     Active Substance: TACROLIMUS\TACROLIMUS ANHYDROUS
     Indication: MULTIPLE SCLEROSIS
     Dosage: 0.5 MG, UNK
     Route: 048
     Dates: start: 20120508, end: 20120625
  12. RINDERON V [Concomitant]
     Active Substance: BETAMETHASONE VALERATE
     Dosage: 1.5 MG, UNK
     Route: 048
     Dates: start: 20120913, end: 20120916
  13. SOLU-MEDROL [Concomitant]
     Active Substance: METHYLPREDNISOLONE SODIUM SUCCINATE
     Dosage: 1000 MG, UNK
     Route: 065
     Dates: start: 20121205, end: 20121205
  14. SOLU-MEDROL [Concomitant]
     Active Substance: METHYLPREDNISOLONE SODIUM SUCCINATE
     Dosage: 500 MG, UNK
     Route: 065
     Dates: start: 20150203, end: 20150203
  15. RINDERON V [Concomitant]
     Active Substance: BETAMETHASONE VALERATE
     Indication: MULTIPLE SCLEROSIS
     Dosage: 3 MG, UNK
     Route: 048
     Dates: start: 20120910, end: 20120912
  16. PREDONINE [Suspect]
     Active Substance: PREDNISOLONE\PREDNISOLONE ACETATE\PREDNISOLONE SODIUM SUCCINATE
     Dosage: 2.5 MG, UNK
     Route: 048
     Dates: start: 20130416, end: 20130617
  17. RINDERON V [Concomitant]
     Active Substance: BETAMETHASONE VALERATE
     Dosage: 1.5 MG, UNK
     Route: 048
     Dates: start: 20121112, end: 20121115
  18. RINDERON V [Concomitant]
     Active Substance: BETAMETHASONE VALERATE
     Dosage: 1 MG, UNK
     Route: 048
     Dates: start: 20140727, end: 20140730
  19. DEPAKENE [Concomitant]
     Active Substance: VALPROIC ACID
     Indication: BIPOLAR I DISORDER
     Dosage: 300 MG, UNK
     Route: 048
  20. ALLEGRA [Concomitant]
     Active Substance: FEXOFENADINE HYDROCHLORIDE
     Indication: SEASONAL ALLERGY
     Dosage: 120 MG, UNK
     Route: 048
     Dates: start: 20140401, end: 20140430
  21. GILENYA [Suspect]
     Active Substance: FINGOLIMOD HYDROCHLORIDE
     Dosage: 0.5 MG, ON A 2 DAYS ON AND 1 DAY OFF REGIMEN
     Route: 048
     Dates: start: 20141125
  22. PREDONINE [Suspect]
     Active Substance: PREDNISOLONE\PREDNISOLONE ACETATE\PREDNISOLONE SODIUM SUCCINATE
     Dosage: 5 MG, UNK
     Route: 048
     Dates: start: 20130312, end: 20130415
  23. SOLU-MEDROL [Concomitant]
     Active Substance: METHYLPREDNISOLONE SODIUM SUCCINATE
     Dosage: 1000 MG, UNK
     Route: 065
     Dates: start: 20120410, end: 20120412
  24. SOLU-MEDROL [Concomitant]
     Active Substance: METHYLPREDNISOLONE SODIUM SUCCINATE
     Dosage: 1000 MG, UNK
     Route: 065
     Dates: start: 20120831, end: 20120902
  25. SOLU-MEDROL [Concomitant]
     Active Substance: METHYLPREDNISOLONE SODIUM SUCCINATE
     Dosage: 1000 MG, UNK
     Route: 065
     Dates: start: 20121109, end: 20121109
  26. RINDERON V [Concomitant]
     Active Substance: BETAMETHASONE VALERATE
     Dosage: 3 MG, UNK
     Route: 048
     Dates: start: 20121205, end: 20121207
  27. RINDERON V [Concomitant]
     Active Substance: BETAMETHASONE VALERATE
     Dosage: 4.5 MG, QW
     Route: 048
     Dates: start: 20140826, end: 20140901
  28. PYRETHIA//PROMETHAZINE HYDROCHLORIDE [Concomitant]
     Indication: BIPOLAR I DISORDER
     Dosage: 50 MG, UNK
     Route: 048
  29. FLORID [Concomitant]
     Active Substance: MICONAZOLE
     Indication: PROPHYLAXIS
     Dosage: UNK, PRN
     Route: 065
     Dates: start: 20131203, end: 20150216
  30. URITOS [Concomitant]
     Active Substance: IMIDAFENACIN
     Indication: MULTIPLE SCLEROSIS
     Dosage: UNK
     Route: 048
     Dates: start: 201406
  31. PREDONINE [Suspect]
     Active Substance: PREDNISOLONE\PREDNISOLONE ACETATE\PREDNISOLONE SODIUM SUCCINATE
     Dosage: 10 MG, UNK
     Route: 048
     Dates: start: 20140401, end: 20140609
  32. SOLU-MEDROL [Concomitant]
     Active Substance: METHYLPREDNISOLONE SODIUM SUCCINATE
     Dosage: 500 MG, UNK
     Route: 065
     Dates: start: 20140131, end: 20140204
  33. SOLU-MEDROL [Concomitant]
     Active Substance: METHYLPREDNISOLONE SODIUM SUCCINATE
     Dosage: 1000 MG, UNK
     Route: 065
     Dates: start: 20140813, end: 20140813
  34. RINDERON V [Concomitant]
     Active Substance: BETAMETHASONE VALERATE
     Dosage: 3 MG, UNK
     Route: 048
     Dates: start: 20121109, end: 20121111
  35. RINDERON V [Concomitant]
     Active Substance: BETAMETHASONE VALERATE
     Dosage: 2 MG, UNK
     Route: 048
     Dates: start: 20140724, end: 20140726
  36. FAMOTIDINE. [Concomitant]
     Active Substance: FAMOTIDINE
     Indication: PROPHYLAXIS
     Dosage: 20 MG, UNK
     Route: 048
  37. TRAZODONE [Concomitant]
     Active Substance: TRAZODONE HYDROCHLORIDE
     Indication: BIPOLAR I DISORDER
     Dosage: 10 MG, UNK
     Route: 048
  38. LIMAS [Concomitant]
     Active Substance: LITHIUM CARBONATE
     Indication: BIPOLAR I DISORDER
     Dosage: 300 MG, UNK
     Route: 048
  39. PREDONINE [Suspect]
     Active Substance: PREDNISOLONE\PREDNISOLONE ACETATE\PREDNISOLONE SODIUM SUCCINATE
     Indication: MULTIPLE SCLEROSIS
     Dosage: 10 MG, QOD
     Route: 048
     Dates: end: 20120830
  40. KETAS [Concomitant]
     Active Substance: IBUDILAST
     Indication: MULTIPLE SCLEROSIS
     Dosage: 10 MG, TID
     Route: 048
  41. SOLU-MEDROL [Concomitant]
     Active Substance: METHYLPREDNISOLONE SODIUM SUCCINATE
     Dosage: 1000 MG, UNK
     Route: 065
     Dates: start: 20120821, end: 20120821
  42. SOLU-MEDROL [Concomitant]
     Active Substance: METHYLPREDNISOLONE SODIUM SUCCINATE
     Dosage: 1000 MG, UNK
     Route: 065
     Dates: start: 20120910, end: 20120910
  43. PROGRAF [Concomitant]
     Active Substance: TACROLIMUS\TACROLIMUS ANHYDROUS
     Dosage: 1 MG, UNK
     Route: 048
     Dates: start: 20120626
  44. RINDERON V [Concomitant]
     Active Substance: BETAMETHASONE VALERATE
     Dosage: 1.5 MG, UNK
     Route: 048
     Dates: start: 20121208, end: 20121211
  45. BONALON [Concomitant]
     Active Substance: ALENDRONATE SODIUM
     Indication: PROPHYLAXIS
     Dosage: 35 MG, QW
     Route: 048
  46. AMOBAN [Concomitant]
     Active Substance: ZOPICLONE
     Indication: INSOMNIA
     Dosage: 10 MG, UNK
     Route: 048
  47. CERCINE [Concomitant]
     Active Substance: DIAZEPAM
     Indication: BIPOLAR I DISORDER
     Dosage: 6 MG, UNK
     Route: 048

REACTIONS (4)
  - Cystitis [Not Recovered/Not Resolved]
  - Lymphocyte count decreased [Not Recovered/Not Resolved]
  - Glaucoma [Unknown]
  - Prescribed underdose [Unknown]

NARRATIVE: CASE EVENT DATE: 20130416
